FAERS Safety Report 9736749 (Version 1)
Quarter: 2013Q4

REPORT INFORMATION
  Report Type: Spontaneous
  Country: US (occurrence: US)
  Receive Date: 20131206
  Receipt Date: 20131206
  Transmission Date: 20140711
  Serious: No
  Sender: FDA-Public Use
  Company Number: US-BIOGENIDEC-2013BI088123

PATIENT
  Age: 51 Year
  Sex: Male
  Weight: 61 kg

DRUGS (10)
  1. TECFIDERA [Suspect]
     Indication: MULTIPLE SCLEROSIS
     Route: 048
     Dates: start: 20130810, end: 20130816
  2. TECFIDERA [Suspect]
     Indication: MULTIPLE SCLEROSIS
     Route: 048
     Dates: start: 20130817
  3. ADDERALL [Concomitant]
  4. CITALOPRAM [Concomitant]
  5. GABAPENTIN [Concomitant]
  6. MAGNESIUM [Concomitant]
  7. VITAMIN B COMPLEX [Concomitant]
  8. VITAMIN D3 [Concomitant]
  9. ZYRTEC [Concomitant]
  10. FISH OIL [Concomitant]

REACTIONS (4)
  - Flushing [Recovered/Resolved]
  - Abdominal pain upper [Unknown]
  - Diarrhoea [Not Recovered/Not Resolved]
  - Erythema [Unknown]
